FAERS Safety Report 9401048 (Version 1)
Quarter: 2013Q3

REPORT INFORMATION
  Report Type: Spontaneous
  Country: US (occurrence: US)
  Receive Date: 20130715
  Receipt Date: 20130715
  Transmission Date: 20140515
  Serious: Yes (Life-Threatening, Hospitalization)
  Sender: FDA-Public Use
  Company Number: 2013SP001963

PATIENT
  Age: 44 Year
  Sex: Female

DRUGS (7)
  1. LATUDA [Suspect]
     Indication: SCHIZOAFFECTIVE DISORDER
     Route: 048
     Dates: start: 20130625, end: 20130626
  2. GEODON [Suspect]
     Indication: SCHIZOAFFECTIVE DISORDER
     Dates: start: 20130625, end: 201307
  3. GEODON [Suspect]
     Indication: SCHIZOAFFECTIVE DISORDER
     Dates: end: 20130624
  4. LITHIUM [Suspect]
     Indication: SCHIZOAFFECTIVE DISORDER
     Dates: start: 2011, end: 201307
  5. LITHIUM [Suspect]
     Indication: SCHIZOAFFECTIVE DISORDER
     Dates: end: 2011
  6. PROPRANOLOL [Concomitant]
     Indication: TREMOR
  7. SAPHRIS [Concomitant]
     Indication: HALLUCINATION, AUDITORY
     Dates: end: 2013

REACTIONS (1)
  - Cardiac arrest [Recovered/Resolved]
